FAERS Safety Report 18286524 (Version 3)
Quarter: 2021Q1

REPORT INFORMATION
  Report Type: Spontaneous
  Country: FR (occurrence: FR)
  Receive Date: 20200920
  Receipt Date: 20210305
  Transmission Date: 20210419
  Serious: Yes (Death, Hospitalization, Other)
  Sender: FDA-Public Use
  Company Number: FR-BAUSCH-BL-2020-026348

PATIENT
  Age: 75 Year
  Sex: Male

DRUGS (61)
  1. IPRATROPIUM [Suspect]
     Active Substance: IPRATROPIUM
     Route: 055
  2. GLUCONATE DE POTASSIUM [Suspect]
     Active Substance: POTASSIUM GLUCONATE
     Indication: PRODUCT USED FOR UNKNOWN INDICATION
     Route: 065
  3. DIAMOX SEQUELS [Suspect]
     Active Substance: ACETAZOLAMIDE
     Indication: PRODUCT USED FOR UNKNOWN INDICATION
     Route: 065
  4. MIDAZOLAM. [Suspect]
     Active Substance: MIDAZOLAM
     Indication: SEDATION
     Dosage: 5 MG/HR
     Route: 042
     Dates: start: 20200709, end: 20200713
  5. PHOSPHONEUROS [Suspect]
     Active Substance: CALCIUM PHOSPHATE, DIBASIC, ANHYDROUS\MAGNESIUM GLYCEROPHOSPHATE\PHOSPHORIC ACID\SODIUM PHOSPHATE, DIBASIC
     Indication: PNEUMONIA
     Route: 065
     Dates: start: 20200708, end: 20200715
  6. TIORFAN [Suspect]
     Active Substance: RACECADOTRIL
     Indication: PRODUCT USED FOR UNKNOWN INDICATION
     Route: 065
     Dates: start: 20200727, end: 20200804
  7. HYDROXYZINE [Suspect]
     Active Substance: HYDROXYZINE HYDROCHLORIDE
     Indication: PRODUCT USED FOR UNKNOWN INDICATION
     Route: 065
  8. DIAZEPAM. [Suspect]
     Active Substance: DIAZEPAM
     Indication: PRODUCT USED FOR UNKNOWN INDICATION
     Route: 065
  9. SERTRALINE [Suspect]
     Active Substance: SERTRALINE HYDROCHLORIDE
     Route: 048
  10. PIPERACILLINE / TAZOBACTAM [Suspect]
     Active Substance: PIPERACILLIN SODIUM\TAZOBACTAM SODIUM
     Route: 042
  11. CATAPRESSAN (CLONIDINE HYDROCHLORIDE) [Suspect]
     Active Substance: CLONIDINE
     Indication: HYPERTENSION
     Route: 065
     Dates: start: 20200717, end: 20200717
  12. PROPOFOL. [Suspect]
     Active Substance: PROPOFOL
     Indication: SEDATION
     Dosage: 150 MG/HR
     Route: 042
     Dates: start: 20200709, end: 20200720
  13. FUROSEMIDE. [Suspect]
     Active Substance: FUROSEMIDE
     Indication: PRODUCT USED FOR UNKNOWN INDICATION
     Route: 065
  14. ISUPREL [Suspect]
     Active Substance: ISOPROTERENOL HYDROCHLORIDE
     Indication: PRODUCT USED FOR UNKNOWN INDICATION
     Route: 065
     Dates: start: 20200711, end: 20200713
  15. DUPHALAC [Suspect]
     Active Substance: LACTULOSE
     Route: 048
     Dates: start: 20200713, end: 20200715
  16. SERESTA [Suspect]
     Active Substance: OXAZEPAM
     Route: 048
  17. LOPERAMIDE [Suspect]
     Active Substance: LOPERAMIDE
     Indication: DIARRHOEA
     Dosage: SINGLE
     Route: 048
     Dates: start: 20200804, end: 20200804
  18. AMIODARONE [Concomitant]
     Active Substance: AMIODARONE
     Indication: ATRIAL FIBRILLATION
     Dosage: 907.2 MG, CO
     Route: 042
     Dates: start: 20200725, end: 20200727
  19. TEMESTA (LORAZEPAM) [Suspect]
     Active Substance: LORAZEPAM
     Indication: ANXIOLYTIC THERAPY
     Route: 048
     Dates: start: 20200726, end: 20200727
  20. BENERVA [Suspect]
     Active Substance: THIAMINE HYDROCHLORIDE
     Indication: PRODUCT USED FOR UNKNOWN INDICATION
     Route: 065
  21. SERTRALINE [Suspect]
     Active Substance: SERTRALINE HYDROCHLORIDE
     Indication: DEPRESSION
     Route: 048
     Dates: start: 20200726, end: 20200810
  22. SERTRALINE [Suspect]
     Active Substance: SERTRALINE HYDROCHLORIDE
     Route: 048
  23. MACROGOL [Suspect]
     Active Substance: POLYETHYLENE GLYCOLS
     Indication: CONSTIPATION
     Dosage: 2 SACHET
     Route: 048
     Dates: start: 20200713, end: 20200715
  24. TEMESTA (LORAZEPAM) [Suspect]
     Active Substance: LORAZEPAM
     Route: 048
  25. URAPIDIL [Suspect]
     Active Substance: URAPIDIL
     Indication: HYPERTENSION
     Dosage: 5 MG/HR, CO
     Route: 042
     Dates: start: 20200709, end: 20200709
  26. LANSOPRAZOLE. [Suspect]
     Active Substance: LANSOPRAZOLE
     Dosage: SINGLE
     Route: 048
     Dates: start: 20200710, end: 20200805
  27. LANSOPRAZOLE. [Suspect]
     Active Substance: LANSOPRAZOLE
     Route: 048
  28. NORADRENALINE (NORPINEPHRINE) [Suspect]
     Active Substance: NOREPINEPHRINE
     Indication: SEDATION
     Dosage: 0.8 MG/HR, CO
     Route: 042
     Dates: start: 20200709, end: 20200712
  29. REMIFENTANIL HCL [Suspect]
     Active Substance: REMIFENTANIL HYDROCHLORIDE
     Indication: SEDATION
     Route: 042
     Dates: start: 20200720, end: 20200730
  30. CEFOTAXIME [Suspect]
     Active Substance: CEFOTAXIME SODIUM
     Route: 042
  31. LOVENOX [Suspect]
     Active Substance: ENOXAPARIN SODIUM
     Indication: PHLEBITIS
     Dosage: SINGLE
     Route: 058
     Dates: start: 20200708, end: 20200708
  32. IPRATROPIUM [Suspect]
     Active Substance: IPRATROPIUM
     Indication: INHALATION THERAPY
     Route: 055
     Dates: start: 20200730, end: 20200803
  33. IPRATROPIUM [Suspect]
     Active Substance: IPRATROPIUM
     Route: 055
     Dates: start: 20200730, end: 20200803
  34. LANSOPRAZOLE. [Suspect]
     Active Substance: LANSOPRAZOLE
     Indication: GASTROINTESTINAL DISORDER PROPHYLAXIS
     Route: 048
  35. SUFENTANIL CITRATE. [Suspect]
     Active Substance: SUFENTANIL CITRATE
     Indication: GAIT DISTURBANCE
     Route: 065
     Dates: start: 20200709, end: 20200717
  36. DUPHALAC [Suspect]
     Active Substance: LACTULOSE
     Indication: CONSTIPATION
     Route: 048
  37. METHYLPREDNISOLONE. [Suspect]
     Active Substance: METHYLPREDNISOLONE
     Route: 042
  38. POTASSIUM CHLORIDE. [Suspect]
     Active Substance: POTASSIUM CHLORIDE
     Indication: PRODUCT USED FOR UNKNOWN INDICATION
     Route: 065
  39. ATORVASTATINE (ATORVASTATIN) [Concomitant]
     Indication: PRODUCT USED FOR UNKNOWN INDICATION
     Route: 065
  40. ROVAMYCINE (SPIRAMYCIN) [Suspect]
     Active Substance: SPIRAMYCIN
     Indication: PNEUMONIA
     Route: 042
     Dates: start: 20200708, end: 20200715
  41. GLUCONATE DE CALCIUM [Suspect]
     Active Substance: CALCIUM GLUCONATE
     Indication: PRODUCT USED FOR UNKNOWN INDICATION
     Route: 065
  42. PARACETAMOL [Suspect]
     Active Substance: ACETAMINOPHEN
     Indication: PYREXIA
     Dosage: AS REQUIRED
     Route: 042
     Dates: start: 20200719, end: 20200730
  43. DUPHALAC [Suspect]
     Active Substance: LACTULOSE
     Route: 048
  44. METHYLPREDNISOLONE. [Suspect]
     Active Substance: METHYLPREDNISOLONE
     Route: 042
  45. SERESTA [Suspect]
     Active Substance: OXAZEPAM
     Indication: ANXIOLYTIC THERAPY
     Route: 048
  46. CEFOTAXIME [Suspect]
     Active Substance: CEFOTAXIME SODIUM
     Indication: PNEUMONIA
     Route: 042
  47. CEFOTAXIME [Suspect]
     Active Substance: CEFOTAXIME SODIUM
     Route: 042
     Dates: start: 20200708, end: 20200715
  48. SUFENTANIL [Suspect]
     Active Substance: SUFENTANIL
     Indication: SEDATION
     Dosage: 0.33UG/MIN, CO
     Route: 042
     Dates: start: 20200709, end: 20200717
  49. HYDROXYCARBAMIDE [Concomitant]
     Active Substance: HYDROXYUREA
     Indication: PRODUCT USED FOR UNKNOWN INDICATION
     Route: 065
  50. ISOSORBIDE DINITRATE. [Suspect]
     Active Substance: ISOSORBIDE DINITRATE
     Indication: PRODUCT USED FOR UNKNOWN INDICATION
     Route: 065
     Dates: start: 20200714, end: 20200720
  51. NIMBEX [Suspect]
     Active Substance: CISATRACURIUM BESYLATE
     Indication: ENDOTRACHEAL INTUBATION
     Dosage: FREQUENCY: SINGLE
     Route: 042
     Dates: start: 20200715, end: 20200715
  52. HUMALOG [Suspect]
     Active Substance: INSULIN LISPRO
     Indication: PRODUCT USED FOR UNKNOWN INDICATION
     Dosage: CO
     Route: 042
     Dates: start: 20200709, end: 20200730
  53. METHYLPREDNISOLONE. [Suspect]
     Active Substance: METHYLPREDNISOLONE
     Indication: ACUTE RESPIRATORY DISTRESS SYNDROME
     Route: 042
     Dates: start: 20200708, end: 20200723
  54. SERESTA [Suspect]
     Active Substance: OXAZEPAM
     Route: 048
     Dates: start: 20200802, end: 20200804
  55. HYDROXYCARBAMIDE [Concomitant]
     Active Substance: HYDROXYUREA
     Route: 048
     Dates: start: 20200802, end: 20200804
  56. KARDEGIC [Concomitant]
     Active Substance: ASPIRIN DL-LYSINE
     Indication: PRODUCT USED FOR UNKNOWN INDICATION
     Route: 065
  57. TEMESTA (LORAZEPAM) [Suspect]
     Active Substance: LORAZEPAM
     Route: 048
  58. PIPERACILLINE / TAZOBACTAM [Suspect]
     Active Substance: PIPERACILLIN SODIUM\TAZOBACTAM SODIUM
     Indication: PNEUMONIA
     Route: 042
  59. PIPERACILLINE / TAZOBACTAM [Suspect]
     Active Substance: PIPERACILLIN SODIUM\TAZOBACTAM SODIUM
     Route: 042
     Dates: start: 20200723, end: 20200730
  60. MORPHINE CHLORHYDRATE AGUETTANT [Suspect]
     Active Substance: MORPHINE HYDROCHLORIDE
     Indication: PRODUCT USED FOR UNKNOWN INDICATION
     Route: 065
  61. HYDROXYCARBAMIDE [Concomitant]
     Active Substance: HYDROXYUREA
     Route: 048

REACTIONS (1)
  - Toxic epidermal necrolysis [Fatal]

NARRATIVE: CASE EVENT DATE: 20200809
